FAERS Safety Report 16918922 (Version 6)
Quarter: 2020Q4

REPORT INFORMATION
  Report Type: Spontaneous
  Country: US (occurrence: US)
  Receive Date: 20191015
  Receipt Date: 20201026
  Transmission Date: 20210113
  Serious: No
  Sender: FDA-Public Use
  Company Number: US-PFIZER INC-2019439814

PATIENT
  Age: 63 Year
  Sex: Female
  Weight: 117.9 kg

DRUGS (10)
  1. IBRANCE [Suspect]
     Active Substance: PALBOCICLIB
     Indication: INTRADUCTAL PROLIFERATIVE BREAST LESION
     Dosage: 125 MG, DAILY
     Route: 048
     Dates: start: 20190620
  2. OMEGA 3,6,9 [Concomitant]
     Indication: VITAMIN SUPPLEMENTATION
     Dosage: UNK
  3. LETROZOLE. [Concomitant]
     Active Substance: LETROZOLE
     Indication: HORMONE REFRACTORY BREAST CANCER
  4. CALCIUM [Concomitant]
     Active Substance: CALCIUM
     Indication: OSTEOPENIA
     Dosage: 600 MG, 2X/DAY (ONCE IN THE MORNING AND ONCE AT NIGHT)
  5. FLECAINIDE [Concomitant]
     Active Substance: FLECAINIDE
     Indication: ATRIAL FIBRILLATION
     Dosage: 1.5 DF, 2X/DAY (1 1/2 TABLETS IN THE MORNING AND IN THE EVENING)
  6. METOPROLOL. [Concomitant]
     Active Substance: METOPROLOL
     Indication: ATRIAL FIBRILLATION
     Dosage: 1.5 DF, 2X/DAY (1 1/2 TABLETS IN THE MORNING AND IN THE EVENING)
     Dates: start: 201905
  7. B-COMPLEX [VITAMIN B COMPLEX] [Concomitant]
     Indication: VITAMIN SUPPLEMENTATION
     Dosage: UNK (OVER THE COUNTER BOTTLE)
  8. IBRANCE [Suspect]
     Active Substance: PALBOCICLIB
     Indication: HER2 NEGATIVE BREAST CANCER
  9. IBRANCE [Suspect]
     Active Substance: PALBOCICLIB
     Indication: BREAST CANCER FEMALE
     Dosage: 125 MG, CYCLIC (ONCE DAILY FOR 21 DAYS THEN OFF 7 DAYS)
     Route: 048
     Dates: start: 20190603
  10. LETROZOLE. [Concomitant]
     Active Substance: LETROZOLE
     Indication: INTRADUCTAL PROLIFERATIVE BREAST LESION
     Dosage: UNK, 1X/DAY
     Dates: start: 20190603

REACTIONS (9)
  - Alopecia [Unknown]
  - Abdominal discomfort [Not Recovered/Not Resolved]
  - Post procedural complication [Not Recovered/Not Resolved]
  - Condition aggravated [Not Recovered/Not Resolved]
  - Joint stiffness [Unknown]
  - Asthenia [Unknown]
  - Weight increased [Not Recovered/Not Resolved]
  - Fatigue [Unknown]
  - Pain [Unknown]

NARRATIVE: CASE EVENT DATE: 2019
